FAERS Safety Report 4556361-6 (Version None)
Quarter: 2005Q1

REPORT INFORMATION
  Report Type: 
  Country: None (occurrence: None)
  Receive Date: 20050103
  Receipt Date: 20040812
  Transmission Date: 20050727
  Serious: Yes (Other)
  Sender: FDA-Public Use
  Company Number: 2004UW17200

PATIENT
  Age: 51 Year
  Sex: Male
  Weight: 95.2554 kg

DRUGS (19)
  1. CRESTOR [Suspect]
     Indication: BLOOD CHOLESTEROL INCREASED
     Dosage: 20 MG PO
     Route: 048
     Dates: start: 20040401
  2. COZAAR [Concomitant]
  3. MORPHINE [Concomitant]
  4. COUMADIN [Concomitant]
  5. XANAX [Concomitant]
  6. PROZAC [Concomitant]
  7. ELAVIL [Concomitant]
  8. PROTONIX [Concomitant]
  9. TOPAMAX [Concomitant]
  10. TENORMIN [Concomitant]
  11. FLONASE [Concomitant]
  12. COMBIVENT [Concomitant]
  13. HUMIBID [Concomitant]
  14. TIZANIDINE [Concomitant]
  15. EFFEXOR [Concomitant]
  16. PROVIGIL [Concomitant]
  17. STRATTERA [Concomitant]
  18. CLARINEX [Concomitant]
  19. AMBIEN [Concomitant]

REACTIONS (2)
  - ARTHRALGIA [None]
  - RENAL IMPAIRMENT [None]
